FAERS Safety Report 8168898-1 (Version None)
Quarter: 2012Q1

REPORT INFORMATION
  Report Type: 
  Country: None (occurrence: None)
  Receive Date: 20120227
  Receipt Date: 20120223
  Transmission Date: 20120608
  Serious: No
  Sender: FDA-Public Use
  Company Number: US-B.I. PHARMACEUTICALS,INC./RIDGEFIELD-2011-BP-27269BP

PATIENT
  Sex: Male
  Weight: 62.59 kg

DRUGS (10)
  1. MORFORMIN [Concomitant]
  2. MOCFORMIN [Concomitant]
  3. SIMVASTATIN [Concomitant]
  4. METOPROLOL [Concomitant]
  5. HYDRALAZINE HCL [Concomitant]
  6. LASIX [Concomitant]
  7. TRADJENTA [Suspect]
     Indication: DIABETES MELLITUS
     Dosage: 5 MG
     Dates: start: 20111017, end: 20111212
  8. WARFARIN SODIUM [Concomitant]
  9. LANTUS [Concomitant]
  10. LISINOPRIL [Concomitant]

REACTIONS (1)
  - INTERNATIONAL NORMALISED RATIO INCREASED [None]
